FAERS Safety Report 14971864 (Version 2)
Quarter: 2018Q2

REPORT INFORMATION
  Report Type: Report from Study
  Country: DE (occurrence: DE)
  Receive Date: 20180605
  Receipt Date: 20180614
  Transmission Date: 20180711
  Serious: Yes (Other)
  Sender: FDA-Public Use
  Company Number: DE-CONCORDIA PHARMACEUTICALS INC.-E2B_00012089

PATIENT
  Age: 15 Year
  Sex: Male

DRUGS (8)
  1. SORAFENIB [Suspect]
     Active Substance: SORAFENIB
     Indication: EWING^S SARCOMA
     Dosage: SECOND THERAPY REGIME: SORAFENIB 400 MG P.O. (REDUCED DOSAGE)
     Route: 048
  2. PACLITAXEL. [Suspect]
     Active Substance: PACLITAXEL
     Dosage: DAILY DOSE 200 MG/M2
     Route: 042
  3. ARSENIC TRIOXIDE [Suspect]
     Active Substance: ARSENIC TRIOXIDE
     Indication: EWING^S SARCOMA
     Dosage: THIRD THERAPY REGIME: ARSENIC TRIOXIDE 0.1 MG/KG P.O. (REDUCED DOSAGE)
     Route: 048
  4. TRETINOIN. [Suspect]
     Active Substance: TRETINOIN
     Indication: EWING^S SARCOMA
     Dosage: SECOND THERAPY REGIME: TRETINOIN 25 MG/M^2 P.O. (REDUCED DOSAGE)
     Route: 048
  5. VITAMIN E [Suspect]
     Active Substance: .ALPHA.-TOCOPHEROL
     Dosage: SECOND THERAPY REGIME: TRETINOIN 25 MG/M^2 P.O. (REDUCED DOSAGE)
  6. TRIAMTERENE. [Suspect]
     Active Substance: TRIAMTERENE
     Dosage: 25 MG, UNK
     Route: 048
  7. CRIZOTINIB [Suspect]
     Active Substance: CRIZOTINIB
     Dosage: FOURTH THERAPY REGIME: CRIZOTINIB 500 MG P.O. (STANDARD DOSAGE)
     Route: 048
  8. VORINOSTAT [Suspect]
     Active Substance: VORINOSTAT
     Indication: EWING^S SARCOMA
     Dosage: SECOND THERAPY REGIME: VERINOSTAT 400 MG P.O. (STANDARD DOSAGE)
     Route: 048

REACTIONS (10)
  - Anaemia [Unknown]
  - Drug administered to patient of inappropriate age [Unknown]
  - Dyspnoea [Unknown]
  - Bone pain [Unknown]
  - Activated partial thromboplastin time prolonged [Unknown]
  - Product use in unapproved indication [Unknown]
  - Lymphopenia [Unknown]
  - Thrombocytopenia [Unknown]
  - Off label use [Unknown]
  - Pneumonia [Unknown]
